FAERS Safety Report 16023555 (Version 6)
Quarter: 2019Q2

REPORT INFORMATION
  Report Type: Report from Study
  Country: US (occurrence: US)
  Receive Date: 20190301
  Receipt Date: 20190417
  Transmission Date: 20190711
  Serious: Yes (Hospitalization, Other)
  Sender: FDA-Public Use
  Company Number: US-GILEAD-2019-0394271

PATIENT
  Age: 8 Year
  Sex: Male
  Weight: 21.5 kg

DRUGS (6)
  1. ASA [Concomitant]
     Active Substance: ASPIRIN
  2. TADALAFIL. [Concomitant]
     Active Substance: TADALAFIL
  3. UPTRAVI [Concomitant]
     Active Substance: SELEXIPAG
  4. REMODULIN [Concomitant]
     Active Substance: TREPROSTINIL
  5. AMBRISENTAN [Suspect]
     Active Substance: AMBRISENTAN
     Indication: PRODUCT USED FOR UNKNOWN INDICATION
     Dosage: 5 MG, QD
     Route: 048
     Dates: start: 20171214
  6. LASIX [Concomitant]
     Active Substance: FUROSEMIDE

REACTIONS (6)
  - Staphylococcal infection [Unknown]
  - Bacterial infection [Recovered/Resolved]
  - Off label use [Not Recovered/Not Resolved]
  - Pneumonia [Unknown]
  - Vascular device infection [Recovered/Resolved]
  - Pyrexia [Recovered/Resolved]

NARRATIVE: CASE EVENT DATE: 20171214
